FAERS Safety Report 8740866 (Version 2)
Quarter: 2013Q4

REPORT INFORMATION
  Report Type: Report from Study
  Country: JP (occurrence: JP)
  Receive Date: 20120823
  Receipt Date: 20131108
  Transmission Date: 20140711
  Serious: Yes (Hospitalization)
  Sender: FDA-Public Use
  Company Number: JP-009507513-1203USA03002

PATIENT
  Age: 82 Year
  Sex: Male

DRUGS (5)
  1. ZOLINZA CAPSULES 100MG [Suspect]
     Indication: MYCOSIS FUNGOIDES
     Dosage: 400 MG, QD
     Route: 048
     Dates: start: 20120210, end: 20120308
  2. ALESION [Concomitant]
     Indication: MYCOSIS FUNGOIDES
     Dosage: 20 MG, QD
     Route: 048
     Dates: start: 20110901, end: 20120309
  3. AZUCURENIN S [Concomitant]
     Indication: PROPHYLAXIS
     Dosage: 2 G, TID
     Route: 048
     Dates: start: 20120309, end: 20120313
  4. EPINAZION [Concomitant]
     Indication: MYCOSIS FUNGOIDES
     Dosage: 20 MG, QD
     Route: 048
     Dates: start: 20120308, end: 20120404
  5. PERIACTIN [Concomitant]
     Indication: MYCOSIS FUNGOIDES
     Dosage: 20 MG, TID
     Route: 048
     Dates: start: 20120309, end: 20120313

REACTIONS (5)
  - Renal failure [Recovered/Resolved]
  - Dehydration [Recovered/Resolved]
  - Pyrexia [Recovered/Resolved]
  - Malaise [Recovered/Resolved]
  - Decreased appetite [Recovered/Resolved]
